FAERS Safety Report 5576345-9 (Version None)
Quarter: 2007Q4

REPORT INFORMATION
  Report Type: 
  Country: None (occurrence: None)
  Receive Date: 20071228
  Receipt Date: 20071217
  Transmission Date: 20080405
  Serious: Yes (Hospitalization)
  Sender: FDA-Public Use
  Company Number: EG-ROCHE-537295

PATIENT
  Sex: Female

DRUGS (2)
  1. XENICAL [Suspect]
     Indication: OBESITY
     Route: 065
     Dates: start: 20060201
  2. XENICAL [Suspect]
     Route: 065
     Dates: start: 20070801

REACTIONS (2)
  - OVARIAN OPERATION [None]
  - VAGINAL HAEMORRHAGE [None]
